FAERS Safety Report 16124107 (Version 3)
Quarter: 2021Q1

REPORT INFORMATION
  Report Type: Report from Study
  Country: US (occurrence: US)
  Receive Date: 20190327
  Receipt Date: 20210215
  Transmission Date: 20210419
  Serious: No
  Sender: FDA-Public Use
  Company Number: US-HTU-2019US018531

PATIENT
  Age: 59 Year
  Sex: Female

DRUGS (2)
  1. SIMVASTATIN. [Concomitant]
     Active Substance: SIMVASTATIN
     Indication: PRODUCT USED FOR UNKNOWN INDICATION
     Dosage: UNK
     Dates: end: 201903
  2. AKYNZEO [Suspect]
     Active Substance: NETUPITANT\PALONOSETRON HYDROCHLORIDE
     Indication: PRODUCT USED FOR UNKNOWN INDICATION
     Dosage: 4 CYCLES, EVERY 14 DAYS
     Route: 042
     Dates: start: 201902

REACTIONS (2)
  - Increased viscosity of upper respiratory secretion [Recovering/Resolving]
  - Nasopharyngitis [Recovered/Resolved]

NARRATIVE: CASE EVENT DATE: 201902
